FAERS Safety Report 21674566 (Version 1)
Quarter: 2022Q4

REPORT INFORMATION
  Report Type: Spontaneous
  Country: CN (occurrence: CN)
  Receive Date: 20221202
  Receipt Date: 20221202
  Transmission Date: 20230113
  Serious: Yes (Hospitalization, Other)
  Sender: FDA-Public Use
  Company Number: None

PATIENT
  Age: 6 Year
  Sex: Female
  Weight: 17 kg

DRUGS (8)
  1. CYCLOPHOSPHAMIDE [Suspect]
     Active Substance: CYCLOPHOSPHAMIDE
     Indication: Chemotherapy
     Dosage: 695 MG, ONCE DAILY
     Route: 041
     Dates: start: 20221020, end: 20221020
  2. CYCLOPHOSPHAMIDE [Suspect]
     Active Substance: CYCLOPHOSPHAMIDE
     Indication: Neoplasm malignant
  3. PEGASPARGASE [Suspect]
     Active Substance: PEGASPARGASE
     Indication: Chemotherapy
     Dosage: 649 IU, ONCE DAILY
     Route: 030
     Dates: start: 20221021, end: 20221021
  4. PEGASPARGASE [Suspect]
     Active Substance: PEGASPARGASE
     Indication: Neoplasm malignant
  5. METHOTREXATE [Suspect]
     Active Substance: METHOTREXATE
     Indication: Chemotherapy
     Dosage: 12 MG, ONCE IN 7 DAYS
     Route: 037
     Dates: start: 20221022, end: 20221029
  6. METHOTREXATE [Suspect]
     Active Substance: METHOTREXATE
     Indication: Neoplasm malignant
  7. CYTARABINE [Suspect]
     Active Substance: CYTARABINE
     Indication: Chemotherapy
     Dosage: 49 MG, ONCE DAILY
     Route: 041
     Dates: start: 20221022, end: 20221025
  8. CYTARABINE [Suspect]
     Active Substance: CYTARABINE
     Indication: Neoplasm malignant

REACTIONS (3)
  - Condition aggravated [Recovering/Resolving]
  - Myelosuppression [Recovering/Resolving]
  - Infection [Recovering/Resolving]

NARRATIVE: CASE EVENT DATE: 20221104
